FAERS Safety Report 6055558-6 (Version None)
Quarter: 2009Q1

REPORT INFORMATION
  Report Type: 
  Country: None (occurrence: None)
  Receive Date: 20090128
  Receipt Date: 20090123
  Transmission Date: 20090719
  Serious: Yes (Hospitalization)
  Sender: FDA-Public Use
  Company Number: B0555797A

PATIENT
  Age: 82 Year
  Sex: Male

DRUGS (6)
  1. AUGMENTIN '125' [Suspect]
     Indication: URINARY TRACT INFECTION
     Route: 048
     Dates: start: 20080629, end: 20080720
  2. SEGURIL [Concomitant]
     Route: 048
  3. DIGOXIN [Concomitant]
     Route: 048
  4. OMEPRAZOLE [Concomitant]
     Route: 048
  5. PLAVIX [Concomitant]
     Route: 048
  6. SIMVASTATINA [Concomitant]
     Route: 048

REACTIONS (1)
  - PYREXIA [None]
